FAERS Safety Report 4474855-9 (Version None)
Quarter: 2004Q4

REPORT INFORMATION
  Report Type: 
  Country: None (occurrence: None)
  Receive Date: 20041012
  Receipt Date: 20040928
  Transmission Date: 20050328
  Serious: Yes (Life-Threatening, Disabling, Other)
  Sender: FDA-Public Use
  Company Number: 209330

PATIENT
  Age: 67 Year
  Sex: Female

DRUGS (1)
  1. RITUXAN [Suspect]
     Indication: NON-HODGKIN'S LYMPHOMA
     Dosage: SEE IMAGE
     Route: 042

REACTIONS (7)
  - ALPHA TUMOUR NECROSIS FACTOR INCREASED [None]
  - COMPLEMENT FACTOR INCREASED [None]
  - LEG AMPUTATION [None]
  - NECROSIS [None]
  - PROTEUS INFECTION [None]
  - PSEUDOMONAS INFECTION [None]
  - SKIN ULCER [None]
